FAERS Safety Report 8310651-X (Version None)
Quarter: 2012Q2

REPORT INFORMATION
  Report Type: 
  Country: None (occurrence: None)
  Receive Date: 20120425
  Receipt Date: 20120419
  Transmission Date: 20120825
  Serious: No
  Sender: FDA-Public Use
  Company Number: US-BAYER-2012-039932

PATIENT

DRUGS (3)
  1. MOTRIN [Concomitant]
  2. ALEVE (CAPLET) [Suspect]
  3. ACETAMINOPHEN [Concomitant]

REACTIONS (3)
  - INSOMNIA [None]
  - PAIN [None]
  - BACK PAIN [None]
